FAERS Safety Report 11271873 (Version 3)
Quarter: 2015Q4

REPORT INFORMATION
  Report Type: Spontaneous
  Country: IT (occurrence: IT)
  Receive Date: 20150715
  Receipt Date: 20151113
  Transmission Date: 20160304
  Serious: Yes (Hospitalization)
  Sender: FDA-Public Use
  Company Number: IT-ROCHE-1607893

PATIENT
  Age: 61 Year
  Sex: Female

DRUGS (1)
  1. XOLAIR [Suspect]
     Active Substance: OMALIZUMAB
     Indication: ASTHMA
     Route: 058
     Dates: start: 20150622

REACTIONS (5)
  - Urticaria [Recovered/Resolved]
  - Throat irritation [Recovered/Resolved]
  - Generalised oedema [Recovered/Resolved]
  - Dysphagia [Unknown]
  - Bronchospasm [Recovered/Resolved]

NARRATIVE: CASE EVENT DATE: 20150626
